FAERS Safety Report 7353694-5 (Version None)
Quarter: 2011Q1

REPORT INFORMATION
  Report Type: 
  Country: None (occurrence: None)
  Receive Date: 20110303
  Receipt Date: 20101223
  Transmission Date: 20110831
  Serious: Yes (Hospitalization)
  Sender: FDA-Public Use
  Company Number: US-005760

PATIENT
  Age: 63 Year
  Sex: Male
  Weight: 118.2 kg

DRUGS (5)
  1. ASPIRIN [Concomitant]
  2. BETADINE [Concomitant]
  3. METFORMIN (METFORMIN) [Concomitant]
  4. LIPITOR [Concomitant]
  5. ISOVUE-300 [Suspect]
     Indication: BLADDER CANCER
     Dosage: 75ML ONCE INTRAVENOUS (NOT OTHERWISE SPECIFIED)
     Route: 042
     Dates: start: 20101214, end: 20101214

REACTIONS (1)
  - ANAPHYLACTOID REACTION [None]
